FAERS Safety Report 12270983 (Version 1)
Quarter: 2016Q2

REPORT INFORMATION
  Report Type: Report from Study
  Country: US (occurrence: US)
  Receive Date: 20160415
  Receipt Date: 20160415
  Transmission Date: 20160815
  Serious: Yes (Death, Other)
  Sender: FDA-Public Use
  Company Number: US-009507513-1604USA009002

PATIENT
  Age: 69 Year

DRUGS (2)
  1. DEXAMETHASONE. [Suspect]
     Active Substance: DEXAMETHASONE
     Indication: PLASMA CELL MYELOMA
     Dosage: 40 MG (10 TABLETS), DAYS 1-4 AND DAYS 9-12 EVERY 3 WEEKS,  DURATION: 3 CYCLES
     Route: 048
     Dates: start: 20140321, end: 20140618
  2. BORTEZOMIB [Suspect]
     Active Substance: BORTEZOMIB
     Indication: PLASMA CELL MYELOMA
     Dosage: 1.3 MG, DAYS 1, 4, 8 AND 11, DURATION: 3 CYCLES
     Route: 058
     Dates: start: 20140321, end: 20140618

REACTIONS (1)
  - Plasma cell myeloma [Fatal]

NARRATIVE: CASE EVENT DATE: 20140824
